FAERS Safety Report 4971346-3 (Version None)
Quarter: 2006Q2

REPORT INFORMATION
  Report Type: 
  Country: None (occurrence: None)
  Receive Date: 20060413
  Receipt Date: 20060403
  Transmission Date: 20061013
  Serious: Yes (Hospitalization)
  Sender: FDA-Public Use
  Company Number: 2006SE01931

PATIENT
  Age: 24371 Day
  Sex: Male
  Weight: 75 kg

DRUGS (8)
  1. CANDESARTAN CILEXETIL [Suspect]
     Indication: CARDIAC FAILURE
     Route: 048
     Dates: start: 20051207, end: 20060115
  2. CANDESARTAN CILEXETIL [Suspect]
     Route: 048
     Dates: start: 20060116, end: 20060118
  3. COVERSUM [Concomitant]
     Route: 048
     Dates: start: 20000101
  4. CARVEDILOL [Concomitant]
     Route: 048
     Dates: start: 20040101
  5. ISS MONO [Concomitant]
     Route: 065
     Dates: start: 20000101
  6. SPIRONOLACTONE [Concomitant]
     Route: 048
  7. ALLOPURINOL [Concomitant]
     Route: 048
  8. METFORMIN [Concomitant]
     Route: 048

REACTIONS (1)
  - CIRCULATORY COLLAPSE [None]
